FAERS Safety Report 4304373-X (Version None)
Quarter: 2004Q1

REPORT INFORMATION
  Report Type: 
  Country: None (occurrence: None)
  Receive Date: 20040224
  Receipt Date: 20040218
  Transmission Date: 20041129
  Serious: Yes (Hospitalization)
  Sender: FDA-Public Use
  Company Number: HQWYE843322DEC03

PATIENT
  Age: 56 Year
  Sex: Female
  Weight: 42.22 kg

DRUGS (8)
  1. PROTONIX [Suspect]
     Indication: FLATULENCE
     Dosage: 40 MG 1 X PER W DAY, ORAL
     Route: 048
     Dates: start: 20031208, end: 20031216
  2. PROTONIX [Suspect]
     Indication: PNEUMONIA
     Dosage: 40 MG 1 X PER W DAY, ORAL
     Route: 048
     Dates: start: 20031208, end: 20031216
  3. OXYCONTIN [Concomitant]
  4. EFFEXOR [Concomitant]
  5. PREDNISONE [Concomitant]
  6. NASACORT [Concomitant]
  7. LORAZEPAM [Concomitant]
  8. FLEXERIL [Concomitant]

REACTIONS (7)
  - ABDOMINAL DISCOMFORT [None]
  - CONDITION AGGRAVATED [None]
  - DIARRHOEA [None]
  - FLATULENCE [None]
  - INTESTINAL SPASM [None]
  - MYOCARDIAL INFARCTION [None]
  - PAIN [None]
